FAERS Safety Report 4507587-9 (Version None)
Quarter: 2004Q4

REPORT INFORMATION
  Report Type: 
  Country: None (occurrence: None)
  Receive Date: 20041118
  Receipt Date: 20041111
  Transmission Date: 20050328
  Serious: Yes (Death, Life-Threatening)
  Sender: FDA-Public Use
  Company Number: GBWYE200115NOV04

PATIENT
  Age: 12 Year
  Sex: Female

DRUGS (15)
  1. TAZOCIN             (PIPERACILLIN/TAZOBACTAM, INJECTION) [Suspect]
     Indication: CYSTIC FIBROSIS
     Dosage: 3.6 G 3X PER 1 DAY INTRAVENOUS
     Route: 042
     Dates: start: 20030605, end: 20030619
  2. CREON [Concomitant]
  3. SALBUTAMOL  (SALBUTAMOL) [Concomitant]
  4. BUDESONIDE    (BUDESONIDE) [Concomitant]
  5. .............. [Concomitant]
  6. OMEPRAZOLE [Concomitant]
  7. IBUPROFEN [Concomitant]
  8. CETIRIZINE (CETIRIZINE) [Concomitant]
  9. ................. [Concomitant]
  10. COLISTIN SULFATE (COLISTIN SULFATE) [Concomitant]
  11. TOBRAMYCIN [Concomitant]
  12. CEFTAZIDIME SODIUM [Concomitant]
  13. CIPROFLOXACIN [Concomitant]
  14. NYSTATIN [Concomitant]
  15. ADEK-FALK (COLECALCIFEROL/MENADIOL DIACETATE/RETINOL PALMITATE/TOCOPHE [Concomitant]

REACTIONS (13)
  - BLOOD CREATINE INCREASED [None]
  - CANDIDURIA [None]
  - CATHETER SEPSIS [None]
  - CREPITATIONS [None]
  - FLUSHING [None]
  - GENERAL PHYSICAL HEALTH DETERIORATION [None]
  - HAEMOGLOBIN DECREASED [None]
  - MALAISE [None]
  - MYALGIA [None]
  - NEUTROPHIL COUNT DECREASED [None]
  - PANCYTOPENIA [None]
  - STAPHYLOCOCCAL INFECTION [None]
  - WHITE BLOOD CELL COUNT INCREASED [None]
